FAERS Safety Report 9244335 (Version 1)
Quarter: 2013Q1

REPORT INFORMATION
  Report Type: Spontaneous
  Country: US (occurrence: None)
  Receive Date: 20121130
  Receipt Date: 20121130
  Transmission Date: 20140127
  Serious: Yes (Other)
  Sender: FDA-Public Use
  Company Number: US201207002912

PATIENT
  Sex: Female

DRUGS (1)
  1. BYDUREON [Suspect]
     Dosage: 2MG, WEEKLY (1/W), SUBCUTANEOUS

REACTIONS (2)
  - Pancreatitis [None]
  - Weight decreased [None]
